FAERS Safety Report 5018447-1 (Version None)
Quarter: 2006Q2

REPORT INFORMATION
  Report Type: 
  Country: None (occurrence: None)
  Receive Date: 20060530
  Receipt Date: 20050722
  Transmission Date: 20061013
  Serious: Yes (Other)
  Sender: FDA-Public Use
  Company Number: 2005106414

PATIENT
  Age: 63 Year
  Sex: Male
  Weight: 98 kg

DRUGS (5)
  1. LYRICA [Suspect]
     Indication: ANALGESIC EFFECT
     Dosage: 2 IN 1 D, ORAL
     Route: 048
     Dates: start: 20050616, end: 20050715
  2. FYBOGEL             (ISPAGHULA) [Concomitant]
  3. MEBEVERINE                (MEBEVERINE) [Concomitant]
  4. FAMOTIDINE [Concomitant]
  5. OMEPRAZOLE [Concomitant]

REACTIONS (3)
  - CHEST DISCOMFORT [None]
  - COUGH [None]
  - DYSPNOEA [None]
